FAERS Safety Report 6891484-8 (Version None)
Quarter: 2010Q3

REPORT INFORMATION
  Report Type: 
  Country: None (occurrence: None)
  Receive Date: 20100731
  Receipt Date: 20070702
  Transmission Date: 20110219
  Serious: No
  Sender: FDA-Public Use
  Company Number: US-PFIZER INC-2007033043

PATIENT
  Sex: Female
  Weight: 60.78 kg

DRUGS (6)
  1. NORVASC [Suspect]
     Indication: HYPERTENSION
     Route: 048
     Dates: start: 20060512
  2. NORVASC [Suspect]
     Route: 048
     Dates: start: 20070301, end: 20070412
  3. DARVOCET [Concomitant]
     Dates: start: 20070501
  4. NAPROXEN [Concomitant]
  5. SKELAXIN [Concomitant]
     Dates: start: 20070501
  6. HYDROCODONE BITARTRATE [Concomitant]
     Dates: start: 20070501

REACTIONS (3)
  - DRY SKIN [None]
  - JOINT SWELLING [None]
  - NECK PAIN [None]
